FAERS Safety Report 24808922 (Version 2)
Quarter: 2025Q1

REPORT INFORMATION
  Report Type: Spontaneous
  Country: US (occurrence: US)
  Receive Date: 20250106
  Receipt Date: 20250226
  Transmission Date: 20250408
  Serious: Yes (Other)
  Sender: Vantive US Healthcare
  Company Number: US-VANTIVE-2024VAN022135

PATIENT
  Sex: Male

DRUGS (1)
  1. EXTRANEAL [Suspect]
     Active Substance: CALCIUM CHLORIDE\ICODEXTRIN\MAGNESIUM CHLORIDE\SODIUM CHLORIDE\SODIUM LACTATE
     Route: 033

REACTIONS (5)
  - Peritoneal cloudy effluent [Unknown]
  - Poor quality product administered [Unknown]
  - Product primary packaging issue [Unknown]
  - Product container issue [Unknown]
  - Product tampering [Unknown]

NARRATIVE: CASE EVENT DATE: 20241211
